FAERS Safety Report 6649610-1 (Version None)
Quarter: 2010Q1

REPORT INFORMATION
  Report Type: 
  Country: None (occurrence: None)
  Receive Date: 20100324
  Receipt Date: 20100324
  Transmission Date: 20100710
  Serious: No
  Sender: FDA-Public Use
  Company Number: None

PATIENT
  Age: 30 Year
  Sex: Male

DRUGS (2)
  1. PREVACID [Suspect]
     Indication: GASTROOESOPHAGEAL REFLUX DISEASE
     Dosage: PREVACID 30MG ONCE DAILY PO
     Route: 048
     Dates: start: 20091222, end: 20100104
  2. NEXIUM [Suspect]
     Dosage: NEXIUM 40MG ONCE DAILY PO
     Route: 048

REACTIONS (4)
  - EAR DISORDER [None]
  - ERYTHEMA [None]
  - PRURITUS [None]
  - SWELLING [None]
